FAERS Safety Report 5871429-X (Version None)
Quarter: 2008Q3

REPORT INFORMATION
  Report Type: 
  Country: None (occurrence: None)
  Receive Date: 20080905
  Receipt Date: 20080122
  Transmission Date: 20090109
  Serious: No
  Sender: FDA-Public Use
  Company Number: A0704620A

PATIENT
  Age: 61 Year
  Sex: Female

DRUGS (15)
  1. REQUIP [Suspect]
     Dosage: .5MG PER DAY
     Route: 048
     Dates: start: 20071201
  2. NORVASC [Concomitant]
  3. IMURAN [Concomitant]
  4. MULTIVITAMIN + IRON [Concomitant]
  5. CORGARD [Concomitant]
  6. METFORMIN HCL [Concomitant]
  7. IRON [Concomitant]
     Route: 048
  8. ASPIRIN [Concomitant]
  9. BENADRYL [Concomitant]
  10. ZYRTEC [Concomitant]
  11. OSCAL [Concomitant]
  12. LIDODERM [Concomitant]
  13. ZETIA [Concomitant]
  14. SLEEPING PILL [Concomitant]
  15. TRAMADOL HCL [Concomitant]

REACTIONS (2)
  - DRUG INEFFECTIVE [None]
  - NIGHTMARE [None]
